FAERS Safety Report 5518451-0 (Version None)
Quarter: 2007Q4

REPORT INFORMATION
  Report Type: 
  Country: None (occurrence: None)
  Receive Date: 20071115
  Receipt Date: 20071107
  Transmission Date: 20080405
  Serious: Yes (Other)
  Sender: FDA-Public Use
  Company Number: US-PFIZER INC-2007093832

PATIENT
  Sex: Male
  Weight: 75.909 kg

DRUGS (6)
  1. LIPITOR [Suspect]
     Indication: BLOOD CHOLESTEROL INCREASED
     Dates: start: 20060101, end: 20071001
  2. HYDROCHLOROTHIAZIDE [Concomitant]
  3. LISINOPRIL [Concomitant]
  4. BETAPACE [Concomitant]
  5. AMITRIPTYLINE HCL [Concomitant]
  6. ACETYLSALICYLIC ACID SRT [Concomitant]

REACTIONS (5)
  - BED REST [None]
  - DIARRHOEA [None]
  - FLATULENCE [None]
  - GAIT DISTURBANCE [None]
  - MYALGIA [None]
